FAERS Safety Report 16541496 (Version 1)
Quarter: 2019Q3

REPORT INFORMATION
  Report Type: Spontaneous
  Country: IT (occurrence: IT)
  Receive Date: 20190708
  Receipt Date: 20190708
  Transmission Date: 20191004
  Serious: Yes (Hospitalization, Other)
  Sender: FDA-Public Use
  Company Number: IT-INCYTE CORPORATION-2019IN006717

PATIENT

DRUGS (4)
  1. JAKAVI [Suspect]
     Active Substance: RUXOLITINIB
     Indication: VASCULITIS NECROTISING
     Dosage: 0.25 MG/KG, QD
     Route: 048
  2. JAKAVI [Suspect]
     Active Substance: RUXOLITINIB
     Dosage: 0.2 MG/KG, QD
     Route: 048
  3. JAKAVI [Suspect]
     Active Substance: RUXOLITINIB
     Dosage: 0.5 MG/KG, QD
     Route: 048
  4. JAKAVI [Suspect]
     Active Substance: RUXOLITINIB
     Dosage: 0.7 MG/KG, QD
     Route: 048

REACTIONS (8)
  - Influenza [Unknown]
  - Respiratory tract infection [Unknown]
  - Product use in unapproved indication [Unknown]
  - Corona virus infection [Unknown]
  - Varicella [Unknown]
  - Concomitant disease aggravated [Unknown]
  - Rhinovirus infection [Unknown]
  - Interstitial lung disease [Unknown]
